FAERS Safety Report 8348480-3 (Version None)
Quarter: 2012Q2

REPORT INFORMATION
  Report Type: 
  Country: None (occurrence: None)
  Receive Date: 20120509
  Receipt Date: 20120429
  Transmission Date: 20120825
  Serious: Yes (Hospitalization)
  Sender: FDA-Public Use
  Company Number: IE-BAXTER-2012BH002645

PATIENT
  Sex: Female
  Weight: 69.2 kg

DRUGS (8)
  1. CIPROFLOXACIN HCL [Suspect]
     Indication: ANTIBIOTIC THERAPY
     Route: 042
     Dates: end: 20120124
  2. SODIUM CHLORIDE_SODIUM CHLORIDE 0.90 %_SOLUTION FOR INFUSION_BAG, PVC [Suspect]
     Indication: OSTEOMYELITIS
     Route: 042
     Dates: start: 20120120, end: 20120124
  3. WATER FOR INJECTION_WATER FOR INJECTION 100.00 %_SOLUTION FOR INFUSION [Suspect]
     Indication: OSTEOMYELITIS
     Route: 042
     Dates: start: 20120120, end: 20120124
  4. FLUCLOXACILLIN [Suspect]
     Indication: OSTEOMYELITIS
     Route: 042
     Dates: start: 20120120, end: 20120124
  5. LERCANIDIPINE [Concomitant]
     Indication: HYPERTENSION
     Route: 048
  6. CAPTOPRIL [Concomitant]
     Indication: HYPERTENSION
     Route: 048
  7. PRAVASTATIN [Concomitant]
     Route: 048
  8. PROMECORT [Concomitant]
     Route: 048

REACTIONS (5)
  - INFUSION SITE EXTRAVASATION [None]
  - DEVICE BREAKAGE [None]
  - INFUSION SITE SWELLING [None]
  - SUBCLAVIAN VEIN THROMBOSIS [None]
  - VENA CAVA THROMBOSIS [None]
